FAERS Safety Report 4890621-4 (Version None)
Quarter: 2006Q1

REPORT INFORMATION
  Report Type: 
  Country: None (occurrence: None)
  Receive Date: 20060120
  Receipt Date: 20060105
  Transmission Date: 20060701
  Serious: Yes (Hospitalization)
  Sender: FDA-Public Use
  Company Number: 221025

PATIENT
  Age: 33 Year
  Sex: Male

DRUGS (6)
  1. AVASTIN [Suspect]
     Indication: COLORECTAL CANCER METASTATIC
     Dosage: 7.5 MG/KG, Q3W, INTRAVENOUS
     Route: 042
     Dates: start: 20060104
  2. IRINOTECAN HCL [Suspect]
     Indication: COLORECTAL CANCER
     Dosage: 350 MG/M2, Q3W, INTRAVENOUS
     Route: 042
     Dates: start: 20060104
  3. ONDANSETRON [Concomitant]
  4. ATROPINE [Concomitant]
  5. MORPHINE [Concomitant]
  6. MACROGOL (POLYETHYLENE GLYCOL) [Concomitant]

REACTIONS (1)
  - CHOLINERGIC SYNDROME [None]
